FAERS Safety Report 9602509 (Version 1)
Quarter: 2013Q4

REPORT INFORMATION
  Report Type: Spontaneous
  Country: US (occurrence: US)
  Receive Date: 20131007
  Receipt Date: 20131007
  Transmission Date: 20140711
  Serious: No
  Sender: FDA-Public Use
  Company Number: US-009507513-1309USA004077

PATIENT
  Sex: Female

DRUGS (1)
  1. PEGINTRON [Suspect]
     Dosage: 80 MICROGRAM, QW, REDIPEN
     Route: 058
     Dates: start: 20130711

REACTIONS (3)
  - Underdose [Unknown]
  - Product packaging quantity issue [Unknown]
  - No adverse event [Unknown]
